FAERS Safety Report 6096024-1 (Version None)
Quarter: 2009Q1

REPORT INFORMATION
  Report Type: 
  Country: None (occurrence: None)
  Receive Date: 20090227
  Receipt Date: 20080812
  Transmission Date: 20090719
  Serious: No
  Sender: FDA-Public Use
  Company Number: A0742192A

PATIENT
  Age: 49 Year
  Sex: Female

DRUGS (7)
  1. LAMICTAL [Suspect]
     Indication: BIPOLAR DISORDER
     Dosage: 50MG PER DAY
     Route: 048
     Dates: start: 20080725, end: 20080810
  2. TRAZODONE HCL [Concomitant]
  3. LEXAPRO [Concomitant]
  4. THYROID TAB [Concomitant]
  5. PROGESTERONE [Concomitant]
  6. PERCOCET [Concomitant]
  7. FLEXERIL [Concomitant]

REACTIONS (3)
  - OROPHARYNGEAL PAIN [None]
  - RASH [None]
  - STOMATITIS [None]
